FAERS Safety Report 9006176 (Version 1)
Quarter: 2013Q1

REPORT INFORMATION
  Report Type: Spontaneous
  Country: US (occurrence: US)
  Receive Date: 20130110
  Receipt Date: 20130110
  Transmission Date: 20140127
  Serious: Yes (Other)
  Sender: FDA-Public Use
  Company Number: US-009507513-0907USA03583

PATIENT
  Age: 4 Year
  Sex: Male
  Weight: 40.82 kg

DRUGS (1)
  1. SINGULAIR [Suspect]
     Route: 048
     Dates: start: 20040301, end: 20080924

REACTIONS (8)
  - Abnormal behaviour [Unknown]
  - Abnormal dreams [Unknown]
  - Anger [Unknown]
  - Fear [Unknown]
  - Homicidal ideation [Unknown]
  - Pain in extremity [Unknown]
  - Suicidal ideation [Unknown]
  - Weight abnormal [Unknown]
